FAERS Safety Report 9039652 (Version 1)
Quarter: 2013Q1

REPORT INFORMATION
  Report Type: Report from Study
  Country: US (occurrence: US)
  Receive Date: 20130129
  Receipt Date: 20130129
  Transmission Date: 20140127
  Serious: No
  Sender: FDA-Public Use
  Company Number: US-ABBOTT-12P-163-0922832-00

PATIENT
  Age: 24 None
  Sex: Female
  Weight: 68.1 kg

DRUGS (10)
  1. HUMIRA 40 MG/0.8 ML PEN [Suspect]
     Indication: RHEUMATOID ARTHRITIS
     Dates: start: 20120225
  2. METHOTREXATE [Concomitant]
     Indication: RHEUMATOID ARTHRITIS
     Dosage: WEEKLY
  3. METHOTREXATE [Concomitant]
     Dates: start: 201206
  4. NAPROXEN [Concomitant]
     Indication: RHEUMATOID ARTHRITIS
     Dosage: 1000 MG DAILY
  5. FOLIC ACID [Concomitant]
     Indication: PRODUCT USED FOR UNKNOWN INDICATION
     Dosage: 1 MG DAILY
  6. RANITIDINE [Concomitant]
     Indication: ANTACID THERAPY
     Dosage: 300 MG DAILY WITH NAPROXEN
  7. PREDNISONE [Concomitant]
     Indication: RHEUMATOID ARTHRITIS
     Dosage: 10 MG DAILY
  8. PREDNISONE [Concomitant]
     Dates: start: 201206
  9. PROTONIX [Concomitant]
     Indication: PRODUCT USED FOR UNKNOWN INDICATION
  10. MELOXICAM [Concomitant]
     Indication: PRODUCT USED FOR UNKNOWN INDICATION

REACTIONS (18)
  - Migraine [Not Recovered/Not Resolved]
  - Injection site pain [Recovering/Resolving]
  - Injection site pain [Unknown]
  - Injection site pain [Unknown]
  - Injection site bruising [Unknown]
  - Influenza like illness [Not Recovered/Not Resolved]
  - Nausea [Not Recovered/Not Resolved]
  - Headache [Unknown]
  - Gastric disorder [Unknown]
  - Coeliac disease [Not Recovered/Not Resolved]
  - Drug dose omission [Unknown]
  - General physical health deterioration [Not Recovered/Not Resolved]
  - Device malfunction [Unknown]
  - Swelling [Not Recovered/Not Resolved]
  - Musculoskeletal stiffness [Not Recovered/Not Resolved]
  - Contusion [Not Recovered/Not Resolved]
  - Abdominal pain [Not Recovered/Not Resolved]
  - Gastric disorder [Not Recovered/Not Resolved]
